FAERS Safety Report 8169551-0 (Version None)
Quarter: 2012Q1

REPORT INFORMATION
  Report Type: 
  Country: None (occurrence: None)
  Receive Date: 20120104
  Receipt Date: 20111101
  Transmission Date: 20120608
  Serious: No
  Sender: FDA-Public Use
  Company Number: 2011HGS-002728

PATIENT
  Age: 25 Year
  Sex: Female
  Weight: 79.3795 kg

DRUGS (10)
  1. AMBEIN (ZOLPIDEM TARTRATE) (ZOLPIDEM TARTRATE) [Concomitant]
  2. ZANAFLEX (TIZANIDINE HYDORCHLORIDE) (TIZANIDINE HYDORCHLORIDE) [Concomitant]
  3. PLAQUENIL (HYDROXYCHLOROQUINE SULFATE) (HYDROXYCHLOROQUINE SULFATE) [Concomitant]
  4. BENLYSTA [Suspect]
     Indication: SYSTEMIC LUPUS ERYTHEMATOSUS
     Dosage: 1 IN 14 D, INTRAVENOUS DRIP
     Route: 041
     Dates: start: 20110921
  5. VALIUM [Concomitant]
  6. HUMALOG [Concomitant]
  7. DILAUDID (HYDROMORPHONE HYDROCHLORIDE) (HYDROMORPHONE HYDROCHLORIDE) [Concomitant]
  8. LANTUS (INSULIN GLARGINE) (INSULIN GLARGINE) [Concomitant]
  9. BUSPAR (BUSPIRONE HYDROCHLORIDE) (BUSPIRONE HYDORCHLORIDE) [Concomitant]
  10. PREDNISOLONE [Concomitant]

REACTIONS (2)
  - HEADACHE [None]
  - FATIGUE [None]
